FAERS Safety Report 6884658-3 (Version None)
Quarter: 2010Q3

REPORT INFORMATION
  Report Type: 
  Country: None (occurrence: None)
  Receive Date: 20100729
  Receipt Date: 20070813
  Transmission Date: 20110219
  Serious: No
  Sender: FDA-Public Use
  Company Number: US-PFIZER INC-2007050938

PATIENT
  Sex: Male
  Weight: 76.818 kg

DRUGS (7)
  1. CELEBREX [Suspect]
     Indication: ARTHRITIS
  2. LIPITOR [Concomitant]
  3. PLAVIX [Concomitant]
  4. ACIPHEX [Concomitant]
  5. TRICOR [Concomitant]
  6. TOPROL-XL [Concomitant]
  7. ALTACE [Concomitant]

REACTIONS (1)
  - DRUG INEFFECTIVE [None]
